FAERS Safety Report 24377615 (Version 1)
Quarter: 2024Q3

REPORT INFORMATION
  Report Type: Spontaneous
  Country: US (occurrence: US)
  Receive Date: 20240930
  Receipt Date: 20240930
  Transmission Date: 20241017
  Serious: No
  Sender: ARDELYX
  Company Number: US-ARDELYX-2024ARDX004851

PATIENT
  Age: 47 Year
  Sex: Female
  Weight: 62 kg

DRUGS (3)
  1. IBSRELA [Suspect]
     Active Substance: TENAPANOR HYDROCHLORIDE
     Indication: Constipation
     Dosage: 50 MILLIGRAM, BID
     Route: 048
     Dates: start: 202406, end: 202406
  2. IBSRELA [Suspect]
     Active Substance: TENAPANOR HYDROCHLORIDE
     Dosage: 50 MILLIGRAM, QD
     Route: 048
     Dates: start: 202406, end: 202406
  3. IBSRELA [Suspect]
     Active Substance: TENAPANOR HYDROCHLORIDE
     Dosage: 25 MILLIGRAM, QD (HALF TABLET)
     Route: 048
     Dates: start: 202406, end: 202406

REACTIONS (3)
  - Alopecia [Not Recovered/Not Resolved]
  - Rhinalgia [Unknown]
  - Product use in unapproved indication [Unknown]
